FAERS Safety Report 4354065-6 (Version None)
Quarter: 2004Q2

REPORT INFORMATION
  Report Type: 
  Country: None (occurrence: None)
  Receive Date: 20040503
  Receipt Date: 20040421
  Transmission Date: 20050107
  Serious: Yes (Death)
  Sender: FDA-Public Use
  Company Number: BE-JNJFOC-20040402700

PATIENT
  Age: 2 Month
  Sex: Female

DRUGS (2)
  1. CISAPRIDE (CISAPRIDE) SUSPENSION [Suspect]
     Indication: GASTROOESOPHAGEAL REFLUX DISEASE
     Dosage: 0.48 MG, 4 IN 1 DAY,
     Dates: start: 20030908, end: 20030918
  2. LUMINAL (PHENOBARBITAL) [Concomitant]

REACTIONS (15)
  - ATELECTASIS [None]
  - COLLAPSE OF LUNG [None]
  - DRUG EFFECT DECREASED [None]
  - ENTEROBACTER INFECTION [None]
  - GASTRIC PERFORATION [None]
  - GASTROINTESTINAL NECROSIS [None]
  - ILEUS [None]
  - IMPLANT SITE INFECTION [None]
  - INTESTINAL DILATATION [None]
  - MALNUTRITION [None]
  - PERITONITIS [None]
  - PNEUMONIA KLEBSIELLA [None]
  - POST PROCEDURAL COMPLICATION [None]
  - SHOCK [None]
  - THYMUS HYPERTROPHY [None]
